FAERS Safety Report 7298035-7 (Version None)
Quarter: 2011Q1

REPORT INFORMATION
  Report Type: 
  Country: None (occurrence: None)
  Receive Date: 20110217
  Receipt Date: 20110214
  Transmission Date: 20110831
  Serious: No
  Sender: FDA-Public Use
  Company Number: US-PFIZER INC-2011032556

PATIENT
  Age: 49 Year
  Sex: Female
  Weight: 68 kg

DRUGS (6)
  1. HYDROCHLOROTHIAZIDE [Concomitant]
  2. LUNESTA [Interacting]
     Indication: INSOMNIA
     Dosage: 3 MG, 1X/DAY (HS)
     Route: 048
     Dates: start: 20100101
  3. KLONOPIN [Concomitant]
  4. MOTRIN [Concomitant]
  5. PREVACID [Concomitant]
  6. ZOLOFT [Suspect]
     Indication: ANXIETY
     Dosage: UNK
     Dates: start: 20100101

REACTIONS (4)
  - DRUG EFFECT DECREASED [None]
  - NASOPHARYNGITIS [None]
  - DRUG INTERACTION [None]
  - INSOMNIA [None]
